FAERS Safety Report 9450083 (Version 1)
Quarter: 2013Q3

REPORT INFORMATION
  Report Type: Spontaneous
  Country: US (occurrence: US)
  Receive Date: 20130809
  Receipt Date: 20130809
  Transmission Date: 20140515
  Serious: No
  Sender: FDA-Public Use
  Company Number: US-AMGEN-USASP2013017682

PATIENT
  Age: 42 Year
  Sex: Female
  Weight: 140.5 kg

DRUGS (1)
  1. NPLATE [Suspect]
     Indication: IMMUNE THROMBOCYTOPENIC PURPURA
     Dosage: 410 MG, AS NECESSARY
     Route: 058
     Dates: start: 20110610

REACTIONS (2)
  - Sleep disorder [Unknown]
  - Fatigue [Unknown]
